FAERS Safety Report 6427088-0 (Version None)
Quarter: 2009Q4

REPORT INFORMATION
  Report Type: 
  Country: None (occurrence: None)
  Receive Date: 20091104
  Receipt Date: 20091023
  Transmission Date: 20100525
  Serious: Yes (Death)
  Sender: FDA-Public Use
  Company Number: SG-BRISTOL-MYERS SQUIBB COMPANY-14840987

PATIENT

DRUGS (2)
  1. AMPHOTERICIN B [Suspect]
     Indication: ANTIFUNGAL TREATMENT
  2. FLUCONAZOLE [Suspect]
     Indication: ANTIFUNGAL TREATMENT

REACTIONS (1)
  - DRUG INEFFECTIVE [None]
